FAERS Safety Report 5690589-7 (Version None)
Quarter: 2008Q1

REPORT INFORMATION
  Report Type: 
  Country: None (occurrence: None)
  Receive Date: 20080331
  Receipt Date: 20080331
  Transmission Date: 20080703
  Serious: Yes (Other)
  Sender: FDA-Public Use
  Company Number: None

PATIENT
  Age: 45 Year
  Sex: Female
  Weight: 101.6057 kg

DRUGS (1)
  1. SILVER SULFADIAZINE [Suspect]
     Indication: THERMAL BURN
     Dosage: BID TOP
     Route: 061
     Dates: start: 20080324, end: 20080328

REACTIONS (4)
  - BURNING SENSATION [None]
  - FATIGUE [None]
  - MALAISE [None]
  - PAIN IN EXTREMITY [None]
